FAERS Safety Report 9977096 (Version 1)
Quarter: 2014Q1

REPORT INFORMATION
  Report Type: Report from Study
  Country: US (occurrence: US)
  Receive Date: 20140306
  Receipt Date: 20140306
  Transmission Date: 20141002
  Serious: No
  Sender: FDA-Public Use
  Company Number: US-ABBVIE-13P-163-1168415-00

PATIENT
  Age: 64 Year
  Sex: Female
  Weight: 86.26 kg

DRUGS (14)
  1. HUMIRA [Suspect]
     Indication: PSORIATIC ARTHROPATHY
     Route: 058
     Dates: end: 201302
  2. HUMIRA [Suspect]
     Indication: PSORIASIS
  3. LOSARTIN [Concomitant]
     Indication: HYPERTENSION
  4. COREG [Concomitant]
     Indication: HYPERTENSION
  5. FUROSEMIDE [Concomitant]
     Indication: HYPERTENSION
  6. LEVOTHYROXINE [Concomitant]
     Indication: HYPOTHYROIDISM
  7. ASPIRIN [Concomitant]
     Indication: ANTICOAGULANT THERAPY
  8. TYLENOL [Concomitant]
     Indication: RHEUMATOID ARTHRITIS
  9. RENO CAPS [Concomitant]
     Indication: VITAMIN SUPPLEMENTATION
  10. SIMVASTATIN [Concomitant]
     Indication: BLOOD CHOLESTEROL INCREASED
  11. DOXEPIN [Concomitant]
     Indication: PSORIASIS
  12. PAXIL [Concomitant]
     Indication: ANXIETY
  13. GLIPIZIDE [Concomitant]
     Indication: DIABETES MELLITUS
  14. OMEPRAZOLE [Concomitant]
     Indication: GASTROOESOPHAGEAL REFLUX DISEASE

REACTIONS (4)
  - Infection [Recovered/Resolved]
  - Psoriasis [Not Recovered/Not Resolved]
  - Upper respiratory tract infection [Recovered/Resolved]
  - Asthma [Recovered/Resolved]
